FAERS Safety Report 6332108-8 (Version None)
Quarter: 2009Q3

REPORT INFORMATION
  Report Type: 
  Country: None (occurrence: None)
  Receive Date: 20090828
  Receipt Date: 20070720
  Transmission Date: 20100115
  Serious: Yes (Other)
  Sender: FDA-Public Use
  Company Number: US-ASTRAZENECA-2007UW10959

PATIENT
  Age: 21242 Day
  Sex: Male
  Weight: 121.1 kg

DRUGS (21)
  1. SEROQUEL [Suspect]
     Indication: DEPRESSION
     Dosage: 100-500MG
     Route: 048
     Dates: start: 19990126, end: 20070426
  2. SEROQUEL [Suspect]
     Indication: SCHIZOPHRENIA
     Dosage: 100-500MG
     Route: 048
     Dates: start: 19990126, end: 20070426
  3. SEROQUEL [Suspect]
     Indication: DRUG THERAPY
     Dosage: 100-500MG
     Route: 048
     Dates: start: 19990126, end: 20070426
  4. SEROQUEL [Suspect]
     Route: 048
     Dates: start: 19990518, end: 20070426
  5. SEROQUEL [Suspect]
     Route: 048
     Dates: start: 19990518, end: 20070426
  6. SEROQUEL [Suspect]
     Route: 048
     Dates: start: 19990518, end: 20070426
  7. SEROQUEL [Suspect]
     Route: 048
     Dates: start: 20050310
  8. SEROQUEL [Suspect]
     Route: 048
     Dates: start: 20050310
  9. SEROQUEL [Suspect]
     Route: 048
     Dates: start: 20050310
  10. ZYPREXA [Concomitant]
     Dates: start: 19980101, end: 19980301
  11. RISPERDAL [Concomitant]
     Dates: start: 19970601, end: 19971001
  12. VENLAFAXINE HYDROCHLORIDE [Concomitant]
     Indication: DEPRESSION
     Dates: start: 19990518
  13. ASPIRIN [Concomitant]
     Dosage: 1 TABLET DAILY
     Dates: start: 19990829
  14. SIMVASTATIN [Concomitant]
     Indication: BLOOD CHOLESTEROL
     Route: 048
     Dates: start: 20020909
  15. ROFECOXIB [Concomitant]
     Indication: ARTHRALGIA
     Route: 048
     Dates: start: 20020909
  16. NIACIN [Concomitant]
     Indication: BLOOD CHOLESTEROL
     Dosage: 750 MG-1500 MG
     Route: 048
     Dates: start: 20020909
  17. LANSOPRAZOLE [Concomitant]
     Route: 048
     Dates: start: 19990831
  18. ATENOLOL [Concomitant]
     Indication: BLOOD PRESSURE
     Route: 048
     Dates: start: 20020909
  19. METFORMIN HCL [Concomitant]
     Indication: DIABETES MELLITUS
     Route: 048
     Dates: start: 20061215
  20. LISINOPRIL [Concomitant]
     Indication: BLOOD PRESSURE
     Dosage: 20 MG-40 MG
     Route: 048
     Dates: start: 20020909
  21. CLONAZEPAM [Concomitant]
     Indication: ANXIETY
     Dosage: 0.5 MG-1.5 MG
     Route: 048
     Dates: start: 20050312

REACTIONS (5)
  - DIABETES MELLITUS [None]
  - ERECTILE DYSFUNCTION [None]
  - HYPERGLYCAEMIA [None]
  - NEUROPATHY PERIPHERAL [None]
  - TYPE 2 DIABETES MELLITUS [None]
